FAERS Safety Report 17754425 (Version 1)
Quarter: 2020Q2

REPORT INFORMATION
  Report Type: Spontaneous
  Country: US (occurrence: US)
  Receive Date: 20200507
  Receipt Date: 20200507
  Transmission Date: 20200714
  Serious: No
  Sender: FDA-Public Use
  Company Number: US-STRIDES ARCOLAB LIMITED-2020SP004389

PATIENT
  Age: 46 Year
  Sex: Male

DRUGS (9)
  1. GABAPENTIN. [Suspect]
     Active Substance: GABAPENTIN
     Indication: SOCIAL ANXIETY DISORDER
  2. BUPROPION. [Concomitant]
     Active Substance: BUPROPION
     Indication: SOCIAL ANXIETY DISORDER
  3. BUPROPION. [Concomitant]
     Active Substance: BUPROPION
     Indication: GENERALISED ANXIETY DISORDER
  4. OLANZAPINE. [Concomitant]
     Active Substance: OLANZAPINE
     Indication: GENERALISED ANXIETY DISORDER
  5. GABAPENTIN. [Suspect]
     Active Substance: GABAPENTIN
     Indication: MAJOR DEPRESSION
     Dosage: 600 MILLIGRAM, TID
     Route: 065
  6. BUPROPION. [Concomitant]
     Active Substance: BUPROPION
     Indication: MAJOR DEPRESSION
     Dosage: 150 MILLIGRAM, QD
     Route: 065
  7. OLANZAPINE. [Concomitant]
     Active Substance: OLANZAPINE
     Indication: MAJOR DEPRESSION
     Dosage: 5 MILLIGRAM, AT BED TIME
     Route: 065
  8. OLANZAPINE. [Concomitant]
     Active Substance: OLANZAPINE
     Indication: SOCIAL ANXIETY DISORDER
  9. GABAPENTIN. [Suspect]
     Active Substance: GABAPENTIN
     Indication: GENERALISED ANXIETY DISORDER

REACTIONS (1)
  - Off label use [Unknown]
